FAERS Safety Report 6523854-1 (Version None)
Quarter: 2009Q4

REPORT INFORMATION
  Report Type: 
  Country: None (occurrence: None)
  Receive Date: 20091228
  Receipt Date: 20091228
  Transmission Date: 20100525
  Serious: Yes (Disabling)
  Sender: FDA-Public Use
  Company Number: None

PATIENT
  Sex: Male

DRUGS (2)
  1. BUPIVACAINE HYDROCHLORIDE W/EPINEPHRINE [Suspect]
     Indication: PAIN
     Dosage: CONTINUOUS FOR UP TO 48 HOURS OR MORE INJECTION
     Dates: start: 20000404
  2. BUPIVACAINE HYDROCHLORIDE W/EPINEPHRINE [Suspect]
     Indication: PAIN
     Dosage: CONTINUOUS FOR UP TO 48 HOURS OR MORE INJECTION
     Dates: start: 20000929

REACTIONS (2)
  - ACTIVITIES OF DAILY LIVING IMPAIRED [None]
  - CHONDROLYSIS [None]
